FAERS Safety Report 7214809-2 (Version None)
Quarter: 2011Q1

REPORT INFORMATION
  Report Type: 
  Country: None (occurrence: None)
  Receive Date: 20110107
  Receipt Date: 20100428
  Transmission Date: 20110831
  Serious: No
  Sender: FDA-Public Use
  Company Number: A0849182A

PATIENT
  Age: 69 Year
  Sex: Male

DRUGS (11)
  1. BENICAR [Concomitant]
  2. ACIPHEX [Concomitant]
  3. HUMULIN R [Concomitant]
  4. ALLOPURINOL [Concomitant]
  5. COUMADIN [Concomitant]
  6. LISINOPRIL [Concomitant]
  7. NEURONTIN [Concomitant]
  8. LOVAZA [Suspect]
     Dosage: 2CAP TWICE PER DAY
     Route: 048
     Dates: start: 20070608
  9. HYDROCHLOROTHIAZIDE [Concomitant]
  10. COREG [Concomitant]
  11. ZOCOR [Concomitant]

REACTIONS (3)
  - PRODUCT QUALITY ISSUE [None]
  - ABDOMINAL DISCOMFORT [None]
  - DISCOMFORT [None]
